FAERS Safety Report 11087881 (Version 3)
Quarter: 2015Q2

REPORT INFORMATION
  Report Type: Spontaneous
  Country: US (occurrence: US)
  Receive Date: 20150504
  Receipt Date: 20150622
  Transmission Date: 20150821
  Serious: Yes (Hospitalization, Other)
  Sender: FDA-Public Use
  Company Number: US-BAXTER-2015BAX023736

PATIENT
  Age: 53 Year
  Sex: Female

DRUGS (1)
  1. DIANEAL LOW CALCIUM PERITONEAL DIALYSIS SOLUTION WITH DEXTROSE [Suspect]
     Active Substance: CALCIUM CHLORIDE\DEXTROSE\MAGNESIUM CHLORIDE\SODIUM CHLORIDE\SODIUM LACTATE
     Indication: CHRONIC KIDNEY DISEASE
     Route: 033
     Dates: start: 2014

REACTIONS (4)
  - Blood pressure decreased [Recovering/Resolving]
  - Malnutrition [Recovering/Resolving]
  - Chronic kidney disease [Recovering/Resolving]
  - Peritoneal dialysis complication [Recovering/Resolving]

NARRATIVE: CASE EVENT DATE: 20150423
